FAERS Safety Report 9859011 (Version 2)
Quarter: 2014Q1

REPORT INFORMATION
  Report Type: Spontaneous
  Country: US (occurrence: US)
  Receive Date: 20140131
  Receipt Date: 20140214
  Transmission Date: 20141002
  Serious: Yes (Hospitalization, Other)
  Sender: FDA-Public Use
  Company Number: US-PFIZER INC-2014028578

PATIENT
  Age: 65 Year
  Sex: Male

DRUGS (2)
  1. AMIODARONE HCL [Suspect]
     Indication: ATRIAL FIBRILLATION
     Dosage: UNK
     Route: 065
  2. DABIGATRAN [Interacting]
     Indication: ANTICOAGULANT THERAPY
     Dosage: 150 MG, TWICE A DAY
     Route: 065

REACTIONS (6)
  - Drug interaction [Recovering/Resolving]
  - Melaena [Recovered/Resolved]
  - Drug level increased [Unknown]
  - Activated partial thromboplastin time prolonged [Recovered/Resolved]
  - Prothrombin time prolonged [Recovering/Resolving]
  - International normalised ratio increased [Recovering/Resolving]
